FAERS Safety Report 5260041-1 (Version None)
Quarter: 2007Q1

REPORT INFORMATION
  Report Type: 
  Country: None (occurrence: None)
  Receive Date: 20070309
  Receipt Date: 20060216
  Transmission Date: 20070707
  Serious: No
  Sender: FDA-Public Use
  Company Number: US-GLAXOSMITHKLINE-A0593781A

PATIENT
  Age: 32 Year
  Sex: Female

DRUGS (1)
  1. EQUATE NICOTINE GUM 2MG, MINT [Suspect]
     Dates: start: 20060125, end: 20060125

REACTIONS (6)
  - ANOREXIA [None]
  - DYSPHAGIA [None]
  - DYSPNOEA [None]
  - HYPERSENSITIVITY [None]
  - PHARYNGEAL OEDEMA [None]
  - THROAT IRRITATION [None]
